FAERS Safety Report 8361603-5 (Version None)
Quarter: 2012Q2

REPORT INFORMATION
  Report Type: 
  Country: None (occurrence: None)
  Receive Date: 20120515
  Receipt Date: 20120511
  Transmission Date: 20120825
  Serious: No
  Sender: FDA-Public Use
  Company Number: US-BAYER-2012-047276

PATIENT
  Age: 77 Year
  Sex: Female
  Weight: 58 kg

DRUGS (2)
  1. EVISTA [Concomitant]
  2. NAPROXEN SODIUM [Suspect]
     Indication: ANALGESIC THERAPY
     Dosage: 1 DF, UNK
     Route: 048
     Dates: start: 20120101, end: 20120511

REACTIONS (1)
  - TINNITUS [None]
